FAERS Safety Report 23445708 (Version 1)
Quarter: 2024Q1

REPORT INFORMATION
  Report Type: Spontaneous
  Country: GB (occurrence: GB)
  Receive Date: 20240126
  Receipt Date: 20240126
  Transmission Date: 20240409
  Serious: Yes (Disabling, Other)
  Sender: FDA-Public Use
  Company Number: None

PATIENT
  Age: 28 Year
  Sex: Female

DRUGS (1)
  1. OLANZAPINE [Suspect]
     Active Substance: OLANZAPINE
     Indication: Mania
     Dosage: DAILY DOSE: 10 MILLIGRAM
     Dates: start: 20230530, end: 20230920

REACTIONS (29)
  - Major depression [Not Recovered/Not Resolved]
  - Drooling [Recovered/Resolved]
  - Sensory processing disorder [Not Recovered/Not Resolved]
  - Sensory overload [Not Recovered/Not Resolved]
  - Anhedonia [Not Recovered/Not Resolved]
  - Anxiety disorder [Not Recovered/Not Resolved]
  - Agoraphobia [Not Recovered/Not Resolved]
  - Agitation [Recovered/Resolved]
  - Personality change [Not Recovered/Not Resolved]
  - Derealisation [Not Recovered/Not Resolved]
  - Psychomotor retardation [Not Recovered/Not Resolved]
  - Vision blurred [Recovered/Resolved]
  - Musculoskeletal stiffness [Not Recovered/Not Resolved]
  - Disturbance in attention [Not Recovered/Not Resolved]
  - Cognitive disorder [Not Recovered/Not Resolved]
  - Social avoidant behaviour [Not Recovered/Not Resolved]
  - Suicidal ideation [Not Recovered/Not Resolved]
  - Pollakiuria [Recovered/Resolved]
  - Lethargy [Not Recovered/Not Resolved]
  - Insomnia [Recovering/Resolving]
  - Reduced facial expression [Recovering/Resolving]
  - Restlessness [Recovered/Resolved]
  - Amnesia [Not Recovered/Not Resolved]
  - Pyrexia [Recovering/Resolving]
  - Asthenia [Not Recovered/Not Resolved]
  - Constipation [Recovered/Resolved]
  - Increased appetite [Not Recovered/Not Resolved]
  - Impaired work ability [Unknown]
  - Loss of personal independence in daily activities [Unknown]

NARRATIVE: CASE EVENT DATE: 20230530
